FAERS Safety Report 4357997-8 (Version None)
Quarter: 2004Q2

REPORT INFORMATION
  Report Type: 
  Country: None (occurrence: None)
  Receive Date: 20040510
  Receipt Date: 20040422
  Transmission Date: 20050107
  Serious: Yes (Other)
  Sender: FDA-Public Use
  Company Number: 194590

PATIENT
  Age: 30 Year
  Sex: Female
  Weight: 85.7298 kg

DRUGS (1)
  1. AVONEX [Suspect]
     Indication: MULTIPLE SCLEROSIS
     Dosage: 30 MCG QW IM
     Route: 030
     Dates: start: 20040308, end: 20040313

REACTIONS (2)
  - CONVULSION [None]
  - INFLUENZA LIKE ILLNESS [None]
